FAERS Safety Report 10175008 (Version 1)
Quarter: 2014Q2

REPORT INFORMATION
  Report Type: Spontaneous
  Country: CN (occurrence: CN)
  Receive Date: 20140515
  Receipt Date: 20140515
  Transmission Date: 20141212
  Serious: Yes (Disabling, Other)
  Sender: FDA-Public Use
  Company Number: PHHY2014CN058738

PATIENT
  Sex: Female
  Weight: 56 kg

DRUGS (2)
  1. DIOVAN [Suspect]
     Indication: HYPERTENSION
     Dosage: 80 MG, QD
     Route: 048
     Dates: start: 20110425, end: 20131122
  2. BETALOC [Suspect]
     Indication: CORONARY ARTERY DISEASE
     Dosage: 23.75 MG, QD
     Route: 048
     Dates: start: 20120725, end: 20131122

REACTIONS (2)
  - Blood creatine phosphokinase abnormal [Not Recovered/Not Resolved]
  - Myalgia [Not Recovered/Not Resolved]
